FAERS Safety Report 23855131 (Version 1)
Quarter: 2024Q2

REPORT INFORMATION
  Report Type: Spontaneous
  Country: US (occurrence: US)
  Receive Date: 20240514
  Receipt Date: 20240514
  Transmission Date: 20240716
  Serious: No
  Sender: FDA-Public Use
  Company Number: US-SANOFI-02036305

PATIENT
  Age: 71 Year
  Sex: Female

DRUGS (2)
  1. DUPIXENT [Suspect]
     Active Substance: DUPILUMAB
     Indication: Dermatitis atopic
     Dosage: LOADING DOSE, 1X
     Dates: start: 20240415, end: 20240415
  2. DUPIXENT [Suspect]
     Active Substance: DUPILUMAB
     Dosage: MAINTENANCE DOSE, QOW
     Dates: start: 20240429, end: 2024

REACTIONS (7)
  - Flushing [Unknown]
  - Disorientation [Unknown]
  - Vomiting [Unknown]
  - Erythema [Unknown]
  - Urticaria [Unknown]
  - Hypersensitivity [Unknown]
  - Eye irritation [Unknown]

NARRATIVE: CASE EVENT DATE: 20240416
